FAERS Safety Report 4817071-0 (Version None)
Quarter: 2005Q4

REPORT INFORMATION
  Report Type: 
  Country: None (occurrence: None)
  Receive Date: 20051101
  Receipt Date: 20050913
  Transmission Date: 20060501
  Serious: Yes (Death)
  Sender: FDA-Public Use
  Company Number: US-BRISTOL-MYERS SQUIBB COMPANY-13110416

PATIENT
  Age: 59 Year
  Sex: Male

DRUGS (1)
  1. ERBITUX [Suspect]
     Indication: COLORECTAL CANCER METASTATIC
     Dosage: INITIAL TX OF 780 MG ON 01-JUL-05. THEN 490 MG ON 15-JUL, 22-JUL AND 29-JUL-05.
     Route: 042
     Dates: start: 20050729, end: 20050729

REACTIONS (1)
  - MALIGNANT NEOPLASM PROGRESSION [None]
